FAERS Safety Report 21060806 (Version 1)
Quarter: 2022Q3

REPORT INFORMATION
  Report Type: Spontaneous
  Country: FR (occurrence: FR)
  Receive Date: 20220709
  Receipt Date: 20220709
  Transmission Date: 20221027
  Serious: Yes (Hospitalization)
  Sender: FDA-Public Use
  Company Number: None

PATIENT
  Age: 78 Year
  Sex: Female
  Weight: 75 kg

DRUGS (2)
  1. PACLITAXEL [Suspect]
     Active Substance: PACLITAXEL
     Indication: Neoplasm malignant
     Dosage: UNIT DOSE 75 MG
     Dates: start: 202203
  2. CARBOPLATIN [Suspect]
     Active Substance: CARBOPLATIN
     Indication: Neoplasm malignant
     Dosage: UNIT DOSE 75 MG
     Dates: start: 202203

REACTIONS (2)
  - Ejection fraction decreased [Recovered/Resolved with Sequelae]
  - Bundle branch block [Recovered/Resolved]

NARRATIVE: CASE EVENT DATE: 20220513
